FAERS Safety Report 5954121-2 (Version None)
Quarter: 2008Q4

REPORT INFORMATION
  Report Type: 
  Country: None (occurrence: None)
  Receive Date: 20081113
  Receipt Date: 20081113
  Transmission Date: 20090506
  Serious: No
  Sender: FDA-Public Use
  Company Number: None

PATIENT
  Sex: Female
  Weight: 58.9676 kg

DRUGS (2)
  1. BONIVA [Suspect]
     Indication: BONE DISORDER
     Dosage: 150 MG 1 X  A MONTH BY MOUTH
     Route: 048
     Dates: end: 20081017
  2. ZETIA [Concomitant]

REACTIONS (3)
  - ARTHRALGIA [None]
  - MEDIAL TIBIAL STRESS SYNDROME [None]
  - PAIN IN EXTREMITY [None]
